FAERS Safety Report 24042360 (Version 2)
Quarter: 2024Q4

REPORT INFORMATION
  Report Type: Spontaneous
  Country: JP (occurrence: JP)
  Receive Date: 20240702
  Receipt Date: 20241105
  Transmission Date: 20250115
  Serious: Yes (Other)
  Sender: JOHNSON AND JOHNSON
  Company Number: JP-JNJFOC-20240656220

PATIENT
  Age: 41 Year
  Sex: Female

DRUGS (6)
  1. ITRACONAZOLE [Suspect]
     Active Substance: ITRACONAZOLE
     Indication: Aspergillus test positive
     Dosage: DOSE UNKNOWN
     Route: 048
  2. VORICONAZOLE [Suspect]
     Active Substance: VORICONAZOLE
     Indication: Aspergillus test positive
     Dosage: DOSE UNKNOWN
     Route: 065
  3. POSACONAZOLE [Suspect]
     Active Substance: POSACONAZOLE
     Indication: Aspergillus test positive
     Dosage: DOSE UNKNOWN
     Route: 065
  4. RUXOLITINIB PHOSPHATE [Concomitant]
     Active Substance: RUXOLITINIB PHOSPHATE
     Indication: Graft versus host disease
     Dosage: DOSE UNKNOWN
     Route: 048
  5. ALLOGENEIC HLA A2/4-1BB MELANOMA VACCINE [Concomitant]
     Indication: Graft versus host disease
     Dosage: DOSE UNKNOWN
     Route: 065
  6. CASPOFUNGIN ACETATE [Concomitant]
     Active Substance: CASPOFUNGIN ACETATE
     Indication: Aspergillus test positive
     Dosage: DOSE UNKNOWN
     Route: 065

REACTIONS (1)
  - Liver disorder [Unknown]
